FAERS Safety Report 16340698 (Version 1)
Quarter: 2019Q2

REPORT INFORMATION
  Report Type: Spontaneous
  Country: IT (occurrence: IT)
  Receive Date: 20190522
  Receipt Date: 20190522
  Transmission Date: 20190711
  Serious: Yes (Other)
  Sender: FDA-Public Use
  Company Number: IT-SUN PHARMACEUTICAL INDUSTRIES LTD-2019RR-208599

PATIENT
  Age: 78 Year
  Sex: Male

DRUGS (5)
  1. OXALIPLATIN. [Suspect]
     Active Substance: OXALIPLATIN
     Indication: COLON CANCER
     Dosage: CYCLICAL
     Route: 042
     Dates: start: 20181113, end: 20190506
  2. DOXIFLURIDINE [Concomitant]
     Active Substance: DOXIFLURIDINE
     Indication: COLON CANCER
     Dosage: 600MG, UNK
     Route: 040
     Dates: start: 20181113, end: 20190506
  3. FLUOROURACIL. [Concomitant]
     Active Substance: FLUOROURACIL
     Indication: COLON CANCER
     Dosage: 1800MG, UNK
     Route: 042
     Dates: start: 20181113, end: 20190506
  4. TRIMETON [Concomitant]
     Active Substance: CHLORPHENIRAMINE MALEATE
     Indication: PREMEDICATION
     Dosage: 10MG, UNK
     Route: 042
     Dates: start: 20190506, end: 20190506
  5. VECTIBIX [Concomitant]
     Active Substance: PANITUMUMAB
     Indication: COLON CANCER
     Dosage: 200MG, UNK
     Route: 042
     Dates: start: 20181113, end: 20190506

REACTIONS (3)
  - Dyspnoea [Recovered/Resolved]
  - Flushing [Recovered/Resolved]
  - Laryngospasm [Recovered/Resolved]

NARRATIVE: CASE EVENT DATE: 20190506
